FAERS Safety Report 7580116-1 (Version None)
Quarter: 2011Q2

REPORT INFORMATION
  Report Type: 
  Country: None (occurrence: None)
  Receive Date: 20110629
  Receipt Date: 20110623
  Transmission Date: 20111010
  Serious: Yes (Other)
  Sender: FDA-Public Use
  Company Number: CA-ELI_LILLY_AND_COMPANY-CA201106006780

PATIENT
  Sex: Female

DRUGS (11)
  1. ZYPREXA [Suspect]
     Dosage: 15 MG, EACH EVENING
  2. ALPRAZOLAM [Concomitant]
  3. ZYPREXA [Suspect]
     Indication: SCHIZOPHRENIA
     Dosage: 10 MG, BID
     Dates: start: 20011020
  4. ZYPREXA [Suspect]
     Dosage: 5 MG, EACH MORNING
  5. ZYPREXA [Suspect]
     Dosage: 7.5 MG, EACH EVENING
  6. FLUANXOL [Concomitant]
  7. RAMIPRIL [Concomitant]
  8. PAXIL [Concomitant]
  9. ZYPREXA ZYDIS [Suspect]
     Indication: SCHIZOPHRENIA
     Dosage: 20 MG, EACH EVENING
  10. LORAZEPAM [Concomitant]
  11. CITALOPRAM HYDROBROMIDE [Concomitant]

REACTIONS (4)
  - DYSLIPIDAEMIA [None]
  - ADRENAL MASS [None]
  - CATARACT [None]
  - TYPE 2 DIABETES MELLITUS [None]
